FAERS Safety Report 8020249-9 (Version None)
Quarter: 2012Q1

REPORT INFORMATION
  Report Type: 
  Country: None (occurrence: None)
  Receive Date: 20120103
  Receipt Date: 20111226
  Transmission Date: 20120608
  Serious: No
  Sender: FDA-Public Use
  Company Number: JP-ROCHE-802151

PATIENT
  Age: 70 Year
  Sex: Female

DRUGS (11)
  1. CALCIUM CARBONATE [Concomitant]
     Route: 048
  2. EPINASTINE HYDROCHLORIDE [Concomitant]
     Route: 048
  3. ACTEMRA [Suspect]
     Route: 042
     Dates: start: 20110908, end: 20111020
  4. RABEPRAZOLE SODIUM [Concomitant]
     Route: 048
  5. TAURINE [Concomitant]
  6. ACTEMRA [Suspect]
     Route: 042
  7. MUCOSTA [Concomitant]
     Route: 048
  8. ASPIRIN [Concomitant]
     Route: 048
  9. ACTEMRA [Suspect]
     Indication: RHEUMATOID ARTHRITIS
     Route: 041
  10. ALLOID G [Concomitant]
     Route: 048
  11. CRESTOR [Concomitant]
     Route: 048

REACTIONS (1)
  - DRUG SPECIFIC ANTIBODY PRESENT [None]
